FAERS Safety Report 15788762 (Version 2)
Quarter: 2019Q1

REPORT INFORMATION
  Report Type: Spontaneous
  Country: US (occurrence: US)
  Receive Date: 20190104
  Receipt Date: 20190212
  Transmission Date: 20190417
  Serious: No
  Sender: FDA-Public Use
  Company Number: US-ASTRAZENECA-2018SF67415

PATIENT
  Sex: Male
  Weight: 72.6 kg

DRUGS (3)
  1. ALBRUTEROL [Concomitant]
     Indication: EMPHYSEMA
     Dosage: AS REQUIRED
     Route: 055
  2. TUDORZA PRESSAIR [Suspect]
     Active Substance: ACLIDINIUM BROMIDE
     Indication: EMPHYSEMA
     Route: 055
     Dates: start: 2015
  3. ABRIN [Concomitant]
     Indication: EMPHYSEMA
     Route: 055

REACTIONS (6)
  - Dyspnoea [Unknown]
  - Device failure [Unknown]
  - Body height decreased [Unknown]
  - Device malfunction [Unknown]
  - Product dose omission [Unknown]
  - Visual impairment [Unknown]
